FAERS Safety Report 9519742 (Version 1)
Quarter: 2013Q1

REPORT INFORMATION
  Report Type: Spontaneous
  Country: US (occurrence: None)
  Receive Date: 20130305
  Receipt Date: 20130305
  Transmission Date: 20140127
  Serious: Yes (Other)
  Sender: FDA-Public Use
  Company Number: 163-21880-12080752

PATIENT
  Age: 74 Year
  Sex: Female

DRUGS (4)
  1. REVLIMID [Suspect]
     Indication: PARAPROTEINAEMIA
     Dosage: 10 MG, 14 IN 14 D, PO
     Route: 048
     Dates: start: 20120607, end: 2012
  2. HYDROCHLOROTHIAZIDE (HYDROCHLOROTHIAZIDE) (UNKNOWN) [Concomitant]
  3. DEXAMETHASONE (DEXAMETHASONE) (UNKNOWN) [Concomitant]
  4. ONDANSETRON (ONDANSETRON) (UNKNOWN) [Concomitant]

REACTIONS (1)
  - Pain in extremity [None]
